FAERS Safety Report 20059356 (Version 1)
Quarter: 2021Q4

REPORT INFORMATION
  Report Type: Spontaneous
  Country: IT (occurrence: IT)
  Receive Date: 20211111
  Receipt Date: 20211111
  Transmission Date: 20220304
  Serious: Yes (Other)
  Sender: FDA-Public Use
  Company Number: IT-PFIZER INC-2013212098

PATIENT
  Age: 1 Year
  Sex: Female

DRUGS (5)
  1. CISPLATIN [Suspect]
     Active Substance: CISPLATIN
     Indication: Glioma
     Dosage: 1200 MILLIGRAM/SQ. METER, TOTAL
  2. CARBOPLATIN [Suspect]
     Active Substance: CARBOPLATIN
     Indication: Glioma
     Dosage: 3500 MG/M2, UNK
  3. CARBOPLATIN [Suspect]
     Active Substance: CARBOPLATIN
     Dosage: 4950 MILLIGRAM/SQ. METER, TOTAL
  4. VINBLASTINESULFAAT PCH [Concomitant]
     Indication: Glioma
     Dosage: 6 MILLIGRAM/SQ. METER
  5. ETOPOSIDE [Concomitant]
     Active Substance: ETOPOSIDE
     Indication: Glioma
     Dosage: 300 MG/M2, FREQ: CYCLICAL

REACTIONS (4)
  - Haematotoxicity [Unknown]
  - Drug hypersensitivity [Unknown]
  - Myelosuppression [Unknown]
  - Hypoacusis [Unknown]
